FAERS Safety Report 5426074-7 (Version None)
Quarter: 2007Q3

REPORT INFORMATION
  Report Type: 
  Country: None (occurrence: None)
  Receive Date: 20070827
  Receipt Date: 20070726
  Transmission Date: 20080115
  Serious: No
  Sender: FDA-Public Use
  Company Number: US-JNJFOC-20070706749

PATIENT
  Age: 30 Year
  Sex: Female
  Weight: 64.86 kg

DRUGS (3)
  1. INVEGA [Suspect]
     Indication: PSYCHOTIC DISORDER
     Route: 048
  2. ZOLOFT [Concomitant]
  3. SUBOXONE [Concomitant]

REACTIONS (1)
  - GALACTORRHOEA [None]
